FAERS Safety Report 8193164-8 (Version None)
Quarter: 2012Q1

REPORT INFORMATION
  Report Type: 
  Country: None (occurrence: None)
  Receive Date: 20120221
  Receipt Date: 20111028
  Transmission Date: 20120608
  Serious: No
  Sender: FDA-Public Use
  Company Number: 027078

PATIENT
  Age: 35 Year
  Sex: Female

DRUGS (3)
  1. LACOSAMIDE [Suspect]
     Indication: PETIT MAL EPILEPSY
     Dosage: (100MG ORAL)
     Route: 048
     Dates: start: 20101001, end: 20110201
  2. CARBAMAZEPINE [Concomitant]
  3. CARBATROL [Concomitant]

REACTIONS (2)
  - CONVULSION [None]
  - THINKING ABNORMAL [None]
